FAERS Safety Report 11981897 (Version 1)
Quarter: 2016Q1

REPORT INFORMATION
  Report Type: Spontaneous
  Country: US (occurrence: None)
  Receive Date: 20160129
  Receipt Date: 20160129
  Transmission Date: 20160526
  Serious: Yes (Hospitalization)
  Sender: FDA-Public Use
  Company Number: None

PATIENT
  Age: 38 Year
  Sex: Female
  Weight: 72.12 kg

DRUGS (2)
  1. LEVEL DFT BATCH PATCH LE-VEL.COM [Suspect]
     Active Substance: DIETARY SUPPLEMENT
     Indication: WEIGHT CONTROL
  2. LE-VEL DIETARY SUPPLEMENTS [Concomitant]

REACTIONS (1)
  - Rash [None]

NARRATIVE: CASE EVENT DATE: 20151223
